FAERS Safety Report 25264562 (Version 1)
Quarter: 2025Q2

REPORT INFORMATION
  Report Type: Spontaneous
  Country: US (occurrence: US)
  Receive Date: 20250502
  Receipt Date: 20250502
  Transmission Date: 20250716
  Serious: Yes (Other)
  Sender: AMGEN
  Company Number: US-AMGEN-USASP2025084929

PATIENT
  Sex: Female

DRUGS (1)
  1. REPATHA [Suspect]
     Active Substance: EVOLOCUMAB
     Indication: Product used for unknown indication
     Route: 065

REACTIONS (5)
  - Retinal artery occlusion [Unknown]
  - Device difficult to use [Unknown]
  - Device use error [Unknown]
  - Accidental exposure to product [Unknown]
  - Drug dose omission by device [Unknown]
